FAERS Safety Report 8523492-5 (Version None)
Quarter: 2012Q3

REPORT INFORMATION
  Report Type: 
  Country: None (occurrence: None)
  Receive Date: 20120720
  Receipt Date: 20120711
  Transmission Date: 20120928
  Serious: Yes (Other)
  Sender: FDA-Public Use
  Company Number: CA-JNJFOC-20120705746

PATIENT
  Sex: Female

DRUGS (4)
  1. VITAMIN D [Concomitant]
     Route: 065
  2. DOMPERIDONE [Concomitant]
     Route: 065
  3. MICRONOR [Concomitant]
     Route: 065
  4. REMICADE [Suspect]
     Indication: CROHN'S DISEASE
     Dosage: ^52^
     Route: 042
     Dates: start: 20071101

REACTIONS (7)
  - MUSCLE SPASMS [None]
  - FLATULENCE [None]
  - DIARRHOEA [None]
  - ABDOMINAL DISTENSION [None]
  - EPISCLERITIS [None]
  - LYMPHOEDEMA [None]
  - ACNE [None]
